FAERS Safety Report 5394051-0 (Version None)
Quarter: 2007Q3

REPORT INFORMATION
  Report Type: 
  Country: None (occurrence: None)
  Receive Date: 20070720
  Receipt Date: 20070720
  Transmission Date: 20080115
  Serious: Yes (Hospitalization)
  Sender: FDA-Public Use
  Company Number: None

PATIENT
  Sex: Male
  Weight: 78.6 kg

DRUGS (1)
  1. TACROLIMUS [Suspect]
     Dosage: 20 MG

REACTIONS (5)
  - CHILLS [None]
  - COUGH [None]
  - DYSPHAGIA [None]
  - FATIGUE [None]
  - PYREXIA [None]
